FAERS Safety Report 8959974 (Version 1)
Quarter: 2012Q4

REPORT INFORMATION
  Report Type: Report from Study
  Country: CA (occurrence: CA)
  Receive Date: 20121212
  Receipt Date: 20121212
  Transmission Date: 20130627
  Serious: Yes (Other)
  Sender: FDA-Public Use
  Company Number: CA-JNJFOC-20121202230

PATIENT
  Age: 39 Year
  Sex: Male
  Weight: 53 kg

DRUGS (3)
  1. REMICADE [Suspect]
     Indication: CROHN^S DISEASE
     Route: 042
     Dates: start: 20120627
  2. CIPRO [Concomitant]
     Indication: INTESTINAL FISTULA
     Route: 065
  3. CIPRO [Concomitant]
     Indication: VESICAL FISTULA
     Route: 065

REACTIONS (2)
  - Intestinal resection [Unknown]
  - Fistula [Unknown]
